FAERS Safety Report 4501538-9 (Version None)
Quarter: 2004Q4

REPORT INFORMATION
  Report Type: 
  Country: None (occurrence: None)
  Receive Date: 20040928
  Receipt Date: 20040818
  Transmission Date: 20050328
  Serious: No
  Sender: FDA-Public Use
  Company Number: 04P-163-0270848-00

PATIENT
  Age: 56 Year
  Sex: Female
  Weight: 96.6162 kg

DRUGS (4)
  1. HUMIRA [Suspect]
     Indication: RHEUMATOID ARTHRITIS
     Dosage: 40 MG, 1 IN 2 WK, SUBCUTANEOUS
     Route: 058
     Dates: start: 20040518
  2. MTHOTREXATE [Concomitant]
  3. PREDNISONE [Concomitant]
  4. BOTULINUM TOXIN TYPE A [Concomitant]

REACTIONS (3)
  - ARTHRALGIA [None]
  - CONDITION AGGRAVATED [None]
  - PAIN IN JAW [None]
